FAERS Safety Report 25582218 (Version 2)
Quarter: 2025Q3

REPORT INFORMATION
  Report Type: Report from Study
  Country: CA (occurrence: CA)
  Receive Date: 20250719
  Receipt Date: 20250725
  Transmission Date: 20251021
  Serious: Yes (Hospitalization)
  Sender: AMGEN
  Company Number: CA-AMGEN-CANSL2025135637

PATIENT
  Age: 64 Year
  Sex: Male

DRUGS (1)
  1. IMDELLTRA [Suspect]
     Active Substance: TARLATAMAB-DLLE
     Indication: Small cell lung cancer extensive stage
     Dosage: 10 MILLIGRAM, Q2WK (CYCLE 1)
     Route: 065
     Dates: start: 20250508

REACTIONS (6)
  - Unevaluable event [Unknown]
  - Cough [Unknown]
  - Dyspnoea exertional [Unknown]
  - Tongue dry [Unknown]
  - Arthralgia [Unknown]
  - Back pain [Unknown]

NARRATIVE: CASE EVENT DATE: 20250101
